FAERS Safety Report 7350615-6 (Version None)
Quarter: 2011Q1

REPORT INFORMATION
  Report Type: 
  Country: None (occurrence: None)
  Receive Date: 20110314
  Receipt Date: 20110303
  Transmission Date: 20110831
  Serious: Yes (Death, Other)
  Sender: FDA-Public Use
  Company Number: GB-JNJFOC-20110302336

PATIENT
  Age: 72 Year
  Sex: Male
  Weight: 65 kg

DRUGS (3)
  1. METHOTREXATE [Concomitant]
     Dosage: WAS STILL ON DRUG AS OF 07-NOV-2007
  2. HYDROXYCHLOROQUINE [Concomitant]
     Dosage: WAS STILL ON DRUG AS OF 07-NOV-2007
  3. REMICADE [Suspect]
     Indication: RHEUMATOID ARTHRITIS
     Route: 042

REACTIONS (2)
  - DEATH [None]
  - SKIN CANCER [None]
